FAERS Safety Report 8807873 (Version 5)
Quarter: 2020Q3

REPORT INFORMATION
  Report Type: Report from Study
  Country: CR (occurrence: CR)
  Receive Date: 20120925
  Receipt Date: 20121122
  Transmission Date: 20201104
  Serious: Yes (Hospitalization)
  Sender: FDA-Public Use
  Company Number: CR-ROCHE-1135121

PATIENT
  Age: 77 Year
  Sex: Female

DRUGS (8)
  1. PREDNISOLONE. [Concomitant]
     Active Substance: PREDNISOLONE
  2. ATACAND [Concomitant]
     Active Substance: CANDESARTAN CILEXETIL
     Dosage: ON AN UNSPECIFIED DATE THERAPY WAS RESTARTED
     Route: 065
  3. IBANDRONIC ACID. [Suspect]
     Active Substance: IBANDRONIC ACID
     Indication: OSTEOPOROSIS
     Route: 048
  4. LEVOFLOXACIN. [Concomitant]
     Active Substance: LEVOFLOXACIN
  5. ESOMEPRAZOLE. [Concomitant]
     Active Substance: ESOMEPRAZOLE MAGNESIUM
  6. VALPROIC ACID. [Concomitant]
     Active Substance: VALPROIC ACID
  7. INDAPAMIDE. [Concomitant]
     Active Substance: INDAPAMIDE
  8. ATACAND [Concomitant]
     Active Substance: CANDESARTAN CILEXETIL
     Indication: HYPERTENSION
     Dosage: ON AN UNSPECIFIED DATE THERAPY WAS STOPPED
     Route: 065

REACTIONS (2)
  - Hydrocephalus [Unknown]
  - Pneumonia [Recovered/Resolved]
